FAERS Safety Report 22120049 (Version 1)
Quarter: 2023Q1

REPORT INFORMATION
  Report Type: Spontaneous
  Country: US (occurrence: None)
  Receive Date: 20230321
  Receipt Date: 20230321
  Transmission Date: 20230418
  Serious: No
  Sender: FDA-Public Use
  Company Number: US-ROCHE-3206041

PATIENT
  Sex: Female

DRUGS (9)
  1. ERIVEDGE [Suspect]
     Active Substance: VISMODEGIB
     Indication: Basal cell carcinoma
     Dosage: TAKE 1 CAPSULE (150MG) BY MOUTH DAILY
     Route: 048
  2. ASPIRIN [Concomitant]
     Active Substance: ASPIRIN
  3. CALCIUM [Concomitant]
     Active Substance: CALCIUM
  4. CARNITINE [Concomitant]
     Active Substance: CARNITINE
  5. MINERALS\VITAMINS [Concomitant]
     Active Substance: MINERALS\VITAMINS
  6. LABETALOL HYDROCHLORIDE [Concomitant]
     Active Substance: LABETALOL HYDROCHLORIDE
  7. MILK OF MAGNESIA [Concomitant]
     Active Substance: MAGNESIUM HYDROXIDE
     Dosage: 1200 MG/1
  8. PROLIA [Concomitant]
     Active Substance: DENOSUMAB
     Dosage: 60 MG/ML
  9. TUMS CHEWIES [Concomitant]

REACTIONS (1)
  - Rash [Unknown]
